FAERS Safety Report 5312645-5 (Version None)
Quarter: 2007Q2

REPORT INFORMATION
  Report Type: 
  Country: None (occurrence: None)
  Receive Date: 20070430
  Receipt Date: 20070125
  Transmission Date: 20071010
  Serious: No
  Sender: FDA-Public Use
  Company Number: 2007UW01590

PATIENT
  Age: 80 Year
  Sex: Female
  Weight: 59 kg

DRUGS (5)
  1. NEXIUM [Suspect]
     Indication: GASTROOESOPHAGEAL REFLUX DISEASE
     Dosage: COUPLE OF TIMES A WEEK
  2. ATIVAN [Concomitant]
  3. VITAMINS [Concomitant]
  4. DULCOLAX [Concomitant]
  5. CLINDAMYCIN [Concomitant]

REACTIONS (2)
  - FAECES DISCOLOURED [None]
  - TOOTH ABSCESS [None]
